FAERS Safety Report 14301057 (Version 1)
Quarter: 2017Q4

REPORT INFORMATION
  Report Type: Spontaneous
  Country: US (occurrence: US)
  Receive Date: 20171212
  Receipt Date: 20171212
  Transmission Date: 20180321
  Serious: Yes (Hospitalization)
  Sender: FDA-Public Use
  Company Number: None

PATIENT
  Age: 12 Year
  Sex: Female
  Weight: 35.83 kg

DRUGS (3)
  1. LUPRON DEPOT-PED [Suspect]
     Active Substance: LEUPROLIDE ACETATE
     Indication: GROWTH RETARDATION
     Dosage: 1 INJECTION(S) 3 MONTHS GIVEN INTO/UNDER THE SKIN
     Route: 058
     Dates: start: 20171208
  2. TYLENOL [Concomitant]
     Active Substance: ACETAMINOPHEN
  3. IBUPROFEN. [Concomitant]
     Active Substance: IBUPROFEN

REACTIONS (19)
  - Pain in extremity [None]
  - Discomfort [None]
  - Anger [None]
  - Headache [None]
  - Gait inability [None]
  - Myositis [None]
  - Rash [None]
  - Muscular weakness [None]
  - Arthropathy [None]
  - Pruritus [None]
  - Contusion [None]
  - Sensory disturbance [None]
  - Irritability [None]
  - Abdominal pain upper [None]
  - Abnormal behaviour [None]
  - Injection site pain [None]
  - Gait disturbance [None]
  - Adverse drug reaction [None]
  - Fatigue [None]

NARRATIVE: CASE EVENT DATE: 20171208
